FAERS Safety Report 10990689 (Version 1)
Quarter: 2015Q2

REPORT INFORMATION
  Report Type: Spontaneous
  Country: JP (occurrence: JP)
  Receive Date: 20150406
  Receipt Date: 20150406
  Transmission Date: 20150821
  Serious: Yes (Other)
  Sender: FDA-Public Use
  Company Number: JP-PFIZER INC-2015050448

PATIENT
  Sex: Male

DRUGS (4)
  1. FENTANYL. [Concomitant]
     Active Substance: FENTANYL
     Indication: PAIN PROPHYLAXIS
     Dosage: UNK
     Route: 064
     Dates: start: 20150203, end: 20150204
  2. JZOLOFT [Suspect]
     Active Substance: SERTRALINE HYDROCHLORIDE
     Indication: ADJUSTMENT DISORDER
     Dosage: 50 MG, 1X/DAY
     Route: 064
  3. MYSLEE [Suspect]
     Active Substance: ZOLPIDEM TARTRATE
     Indication: ADJUSTMENT DISORDER
     Dosage: 10 MG, 1X/DAY
     Route: 064
  4. MEILAX [Suspect]
     Active Substance: ETHYL LOFLAZEPATE
     Indication: ADJUSTMENT DISORDER
     Dosage: 1 MG, 1X/DAY
     Route: 064

REACTIONS (3)
  - Neonatal asphyxia [Unknown]
  - Maternal exposure during pregnancy [Unknown]
  - Hypotonia [Unknown]

NARRATIVE: CASE EVENT DATE: 20150204
